FAERS Safety Report 5718667-4 (Version None)
Quarter: 2008Q2

REPORT INFORMATION
  Report Type: 
  Country: None (occurrence: None)
  Receive Date: 20080425
  Receipt Date: 20080414
  Transmission Date: 20081010
  Serious: Yes (Hospitalization, Other)
  Sender: FDA-Public Use
  Company Number: US-PFIZER INC-2008033165

PATIENT
  Sex: Female
  Weight: 71.2 kg

DRUGS (2)
  1. LYRICA [Suspect]
     Indication: FIBROMYALGIA
  2. LORAZEPAM [Suspect]
     Indication: CONVULSION

REACTIONS (9)
  - AGGRESSION [None]
  - BALANCE DISORDER [None]
  - CONFUSIONAL STATE [None]
  - CONVULSION [None]
  - CYANOSIS [None]
  - DISORIENTATION [None]
  - FALL [None]
  - HEAD INJURY [None]
  - MENTAL IMPAIRMENT [None]
